FAERS Safety Report 5909536-5 (Version None)
Quarter: 2008Q4

REPORT INFORMATION
  Report Type: 
  Country: None (occurrence: None)
  Receive Date: 20081002
  Receipt Date: 20080917
  Transmission Date: 20090506
  Serious: Yes (Hospitalization)
  Sender: FDA-Public Use
  Company Number: 220006L08JPN

PATIENT
  Age: 14 Year
  Sex: Female

DRUGS (2)
  1. SOMATROPIN (SOMATROPIN) [Suspect]
     Indication: BODY HEIGHT BELOW NORMAL
  2. SOMATROPIN (SOMATROPIN) [Suspect]
     Indication: GROWTH HORMONE DEFICIENCY

REACTIONS (5)
  - BULLOUS LUNG DISEASE [None]
  - COUGH [None]
  - HYPERPLASIA [None]
  - PLEURAL DISORDER [None]
  - PNEUMOTHORAX [None]
